FAERS Safety Report 9639358 (Version 2)
Quarter: 2013Q4

REPORT INFORMATION
  Report Type: Spontaneous
  Country: FR (occurrence: None)
  Receive Date: 20131021
  Receipt Date: 20131112
  Transmission Date: 20140711
  Serious: Yes (Other)
  Sender: FDA-Public Use
  Company Number: 2013FR0394

PATIENT
  Age: 19 Year
  Sex: Male

DRUGS (3)
  1. KINERET [Suspect]
     Indication: BRUCELLOSIS
     Route: 058
     Dates: end: 201306
  2. KINERET [Suspect]
     Indication: FAMILIAL MEDITERRANEAN FEVER
     Route: 058
     Dates: end: 201306
  3. COLCHICINE (COLCHICINE) [Concomitant]

REACTIONS (4)
  - Hyperthermia [None]
  - Chills [None]
  - Nausea [None]
  - Abdominal pain [None]
